FAERS Safety Report 14790938 (Version 3)
Quarter: 2018Q2

REPORT INFORMATION
  Report Type: Spontaneous
  Country: JP (occurrence: JP)
  Receive Date: 20180423
  Receipt Date: 20180605
  Transmission Date: 20180711
  Serious: Yes (Other)
  Sender: FDA-Public Use
  Company Number: JP-JNJFOC-20180422207

PATIENT
  Age: 4 Year
  Sex: Female

DRUGS (2)
  1. MESALAZINE [Concomitant]
     Active Substance: MESALAMINE
     Route: 065
  2. REMICADE [Suspect]
     Active Substance: INFLIXIMAB
     Indication: INFLAMMATORY BOWEL DISEASE
     Route: 042

REACTIONS (6)
  - Growth hormone deficiency [Recovering/Resolving]
  - Dwarfism [Recovering/Resolving]
  - Off label use [Unknown]
  - Diabetes insipidus [Recovering/Resolving]
  - Lymphocytic hypophysitis [Recovering/Resolving]
  - Product use issue [Unknown]
